FAERS Safety Report 16022284 (Version 2)
Quarter: 2019Q2

REPORT INFORMATION
  Report Type: Spontaneous
  Country: US (occurrence: US)
  Receive Date: 20190301
  Receipt Date: 20190403
  Transmission Date: 20190711
  Serious: No
  Sender: FDA-Public Use
  Company Number: US-CELGENEUS-USA-20190208279

PATIENT
  Sex: Female

DRUGS (20)
  1. ELOCON [Concomitant]
     Active Substance: MOMETASONE FUROATE
     Route: 061
     Dates: start: 201805
  2. CLOBETASOL [Concomitant]
     Active Substance: CLOBETASOL
     Indication: PSORIASIS
     Route: 061
     Dates: start: 201805
  3. ATARAX [Concomitant]
     Active Substance: HYDROXYZINE HYDROCHLORIDE
     Route: 065
     Dates: start: 201812
  4. DECADRON [Concomitant]
     Active Substance: DEXAMETHASONE
     Indication: PSORIASIS
     Route: 065
     Dates: start: 201701
  5. OTEZLA [Suspect]
     Active Substance: APREMILAST
     Indication: PSORIASIS
     Dosage: 60 MILLIGRAM
     Route: 048
     Dates: start: 20170105
  6. KEFLEX [Concomitant]
     Active Substance: CEPHALEXIN
     Indication: PSORIASIS
     Route: 065
     Dates: start: 201701
  7. ATARAX [Concomitant]
     Active Substance: HYDROXYZINE HYDROCHLORIDE
     Route: 065
     Dates: start: 201802
  8. ELOCON [Concomitant]
     Active Substance: MOMETASONE FUROATE
     Indication: PSORIASIS
     Route: 061
     Dates: start: 201701
  9. ATARAX [Concomitant]
     Active Substance: HYDROXYZINE HYDROCHLORIDE
     Route: 065
     Dates: start: 201708
  10. ELOCON [Concomitant]
     Active Substance: MOMETASONE FUROATE
     Route: 061
     Dates: start: 201704
  11. ELOCON [Concomitant]
     Active Substance: MOMETASONE FUROATE
     Route: 061
     Dates: start: 201707
  12. ELOCON [Concomitant]
     Active Substance: MOMETASONE FUROATE
     Route: 061
     Dates: start: 201708
  13. ELOCON [Concomitant]
     Active Substance: MOMETASONE FUROATE
     Route: 061
     Dates: start: 201711
  14. NIZURAL [Concomitant]
     Indication: PSORIASIS
     Route: 061
     Dates: start: 201701
  15. ATARAX [Concomitant]
     Active Substance: HYDROXYZINE HYDROCHLORIDE
     Route: 065
     Dates: start: 201705
  16. ATARAX [Concomitant]
     Active Substance: HYDROXYZINE HYDROCHLORIDE
     Route: 065
     Dates: start: 201711
  17. ELOCON [Concomitant]
     Active Substance: MOMETASONE FUROATE
     Route: 061
     Dates: start: 201705
  18. ATARAX [Concomitant]
     Active Substance: HYDROXYZINE HYDROCHLORIDE
     Indication: PSORIASIS
     Route: 065
     Dates: start: 201701
  19. ELOCON [Concomitant]
     Active Substance: MOMETASONE FUROATE
     Route: 061
     Dates: start: 201807
  20. ELOCON [Concomitant]
     Active Substance: MOMETASONE FUROATE
     Route: 061
     Dates: start: 201812

REACTIONS (1)
  - Psoriasis [Recovering/Resolving]
